FAERS Safety Report 25740506 (Version 2)
Quarter: 2025Q3

REPORT INFORMATION
  Report Type: Spontaneous
  Country: US (occurrence: US)
  Receive Date: 20250829
  Receipt Date: 20250922
  Transmission Date: 20251021
  Serious: Yes (Hospitalization, Other)
  Sender: Steriscience PTE
  Company Number: US-STERISCIENCE B.V.-2025-ST-001461

PATIENT
  Age: 50 Year
  Sex: Female

DRUGS (14)
  1. VANCOMYCIN [Suspect]
     Active Substance: VANCOMYCIN
     Indication: Evidence based treatment
     Route: 065
  2. PEMBROLIZUMAB [Concomitant]
     Active Substance: PEMBROLIZUMAB
     Indication: Triple negative breast cancer
     Dosage: RECEIVED 4 CYCLES
     Route: 065
  3. PEMBROLIZUMAB [Concomitant]
     Active Substance: PEMBROLIZUMAB
     Dosage: RECEIVED 4 CYCLES
     Route: 065
  4. PACLITAXEL [Concomitant]
     Active Substance: PACLITAXEL
     Indication: Triple negative breast cancer
     Dosage: RECEIVED 4 CYCLES
     Route: 065
  5. CARBOPLATIN [Concomitant]
     Active Substance: CARBOPLATIN
     Indication: Triple negative breast cancer
     Dosage: RECEIVED 4 CYCLES
     Route: 065
  6. CYCLOPHOSPHAMIDE [Concomitant]
     Active Substance: CYCLOPHOSPHAMIDE
     Indication: Triple negative breast cancer
     Dosage: RECEIVED 4 CYCLES
     Route: 065
  7. DOXORUBICIN [Concomitant]
     Active Substance: DOXORUBICIN
     Indication: Triple negative breast cancer
     Dosage: RECEIVED 4 CYCLES
     Route: 065
  8. PROPYLTHIOURACIL [Concomitant]
     Active Substance: PROPYLTHIOURACIL
     Indication: Thyroiditis
     Dosage: 200 MILLIGRAM, Q4H
     Route: 048
  9. PROPYLTHIOURACIL [Concomitant]
     Active Substance: PROPYLTHIOURACIL
     Indication: Thyrotoxic crisis
  10. HYDROCORTISONE [Concomitant]
     Active Substance: HYDROCORTISONE
     Indication: Thyroiditis
     Dosage: 100 MILLIGRAM, Q8H
     Route: 042
  11. HYDROCORTISONE [Concomitant]
     Active Substance: HYDROCORTISONE
     Indication: Thyrotoxic crisis
  12. ATENOLOL [Concomitant]
     Active Substance: ATENOLOL
     Indication: Thyroiditis
     Route: 048
  13. ATENOLOL [Concomitant]
     Active Substance: ATENOLOL
     Indication: Thyrotoxic crisis
  14. ZOSYN [Concomitant]
     Active Substance: PIPERACILLIN SODIUM\TAZOBACTAM SODIUM
     Indication: Evidence based treatment
     Route: 065

REACTIONS (2)
  - Renal tubular necrosis [None]
  - Acute kidney injury [None]
